FAERS Safety Report 25442943 (Version 1)
Quarter: 2025Q2

REPORT INFORMATION
  Report Type: Report from Study
  Country: ZA (occurrence: ZA)
  Receive Date: 20250617
  Receipt Date: 20250617
  Transmission Date: 20250716
  Serious: Yes (Other)
  Sender: ROCHE
  Company Number: ZA-ROCHE-10000307968

PATIENT
  Sex: Female

DRUGS (3)
  1. OCREVUS [Suspect]
     Active Substance: OCRELIZUMAB
     Indication: Primary progressive multiple sclerosis
     Route: 042
     Dates: start: 20240720
  2. Techfidera [Concomitant]
  3. Mavinclad [Concomitant]

REACTIONS (5)
  - Primary progressive multiple sclerosis [Unknown]
  - Fall [Unknown]
  - Head injury [Unknown]
  - Fracture [Unknown]
  - Cerebral haemorrhage [Unknown]
